FAERS Safety Report 6557220-X (Version None)
Quarter: 2010Q1

REPORT INFORMATION
  Report Type: 
  Country: None (occurrence: None)
  Receive Date: 20100127
  Receipt Date: 20100127
  Transmission Date: 20100710
  Serious: Yes (Death)
  Sender: FDA-Public Use
  Company Number: None

PATIENT
  Sex: Female
  Weight: 45.3597 kg

DRUGS (4)
  1. SINGULAIR [Suspect]
     Indication: ASTHMA
     Dosage: M.E. HAD RX
     Dates: start: 20090301, end: 20091206
  2. ADVAIR HFA [Suspect]
     Indication: ASTHMA
     Dosage: 1 PUFF BY MOUTH EVERY 12 HRS
     Dates: start: 20090301, end: 20091205
  3. POTASSIUM SUPPLEMENTS [Concomitant]
  4. LEVOTHYROXINE SODIUM [Concomitant]

REACTIONS (2)
  - ASPHYXIA [None]
  - COMPLETED SUICIDE [None]
